FAERS Safety Report 8343714-3 (Version None)
Quarter: 2012Q2

REPORT INFORMATION
  Report Type: 
  Country: None (occurrence: None)
  Receive Date: 20120508
  Receipt Date: 20120503
  Transmission Date: 20120825
  Serious: Yes (Death)
  Sender: FDA-Public Use
  Company Number: US-UCBSA-041692

PATIENT
  Age: 65 Year
  Sex: Female
  Weight: 44.4 kg

DRUGS (21)
  1. CENTRUM [Concomitant]
     Dosage: DAILY
  2. REMERON [Concomitant]
     Dosage: 15
  3. ASACOL [Concomitant]
  4. CIMZIA [Suspect]
     Indication: CROHN'S DISEASE
     Route: 058
     Dates: start: 20100318
  5. DIGOXIN [Concomitant]
     Dosage: 0.125 DAILY
  6. MAGNESIUM HYDROXIDE TAB [Concomitant]
  7. CALCIUM [Concomitant]
  8. FUROSEMIDE [Concomitant]
     Dosage: 20 DAILY
  9. VITAMIN C [Concomitant]
  10. ZINC SULFATE [Concomitant]
  11. AMLODIPINE [Concomitant]
  12. COREG [Concomitant]
     Dosage: 6.25
  13. NYSTATIN [Concomitant]
  14. LOMOTIL [Concomitant]
     Dosage: 2 MG ONCE EVERY 8 HRS AS NECESSARY
  15. ARGINAID [Concomitant]
  16. LORTAB [Concomitant]
  17. CALCIUM AND VITAMIN D [Concomitant]
  18. CEPACOL [Concomitant]
  19. CYMBALTA [Concomitant]
  20. PRILOSEC [Concomitant]
     Dosage: 20 DAILY
  21. SILVADENE [Concomitant]

REACTIONS (4)
  - DEPRESSION [None]
  - CROHN'S DISEASE [None]
  - MALNUTRITION [None]
  - DECREASED APPETITE [None]
